FAERS Safety Report 6213502-2 (Version None)
Quarter: 2009Q2

REPORT INFORMATION
  Report Type: 
  Country: None (occurrence: None)
  Receive Date: 20090603
  Receipt Date: 20090527
  Transmission Date: 20091009
  Serious: Yes (Hospitalization)
  Sender: FDA-Public Use
  Company Number: US-GILEAD-2009-0022243

PATIENT
  Sex: Female
  Weight: 50 kg

DRUGS (3)
  1. TRUVADA [Suspect]
     Indication: HIV INFECTION
     Route: 048
     Dates: start: 20090417
  2. ATAZANAVIR SULFATE [Suspect]
     Indication: HIV INFECTION
     Dates: start: 20090417
  3. RITONAVIR [Suspect]
     Indication: HIV INFECTION
     Dates: start: 20090417

REACTIONS (1)
  - PNEUMONIA [None]
